FAERS Safety Report 6761129-6 (Version None)
Quarter: 2010Q2

REPORT INFORMATION
  Report Type: 
  Country: None (occurrence: None)
  Receive Date: 20100608
  Receipt Date: 20100602
  Transmission Date: 20101027
  Serious: Yes (Hospitalization, Other)
  Sender: FDA-Public Use
  Company Number: BR-SANOFI-AVENTIS-2010SA032174

PATIENT
  Age: 64 Year
  Sex: Male
  Weight: 75 kg

DRUGS (10)
  1. LANTUS [Suspect]
     Indication: TYPE 2 DIABETES MELLITUS
     Route: 058
     Dates: start: 20090101, end: 20100101
  2. LANTUS [Suspect]
     Route: 058
     Dates: start: 20100101
  3. AUTOPEN 24 [Suspect]
     Dates: start: 20090101
  4. CARVEDILOL [Concomitant]
     Dosage: 1 TAB
     Dates: start: 20090101
  5. CLOPIDOGREL [Concomitant]
     Dosage: 1 TAB
     Route: 048
     Dates: start: 20090101
  6. ATORVASTATIN [Concomitant]
     Dosage: 1 TAB
     Route: 048
     Dates: start: 20090101
  7. NATRILIX [Concomitant]
     Dosage: 1 TAB
     Route: 048
     Dates: start: 20090101
  8. ASPIRIN [Concomitant]
     Dosage: 1 TAB
     Route: 048
     Dates: start: 20090101
  9. ALDACTONE [Concomitant]
     Dosage: 1 TAB
     Route: 048
     Dates: start: 20090101
  10. RIVOTRIL [Concomitant]
     Dosage: 1 TAB
     Route: 048
     Dates: start: 20090101

REACTIONS (4)
  - BLOOD GLUCOSE INCREASED [None]
  - CONDITION AGGRAVATED [None]
  - CORONARY ARTERY DISEASE [None]
  - PULMONARY OEDEMA [None]
